FAERS Safety Report 19011932 (Version 1)
Quarter: 2021Q1

REPORT INFORMATION
  Report Type: Spontaneous
  Country: US (occurrence: US)
  Receive Date: 20210316
  Receipt Date: 20210316
  Transmission Date: 20210420
  Serious: No
  Sender: FDA-Public Use
  Company Number: None

PATIENT
  Age: 65 Year
  Sex: Female
  Weight: 58.5 kg

DRUGS (10)
  1. HAWTHORNE EXTRACT [Concomitant]
  2. BEET POWDER EXTRACT [Concomitant]
  3. SOTALOL. [Concomitant]
     Active Substance: SOTALOL
  4. BOSWELLIA [Concomitant]
     Active Substance: DIETARY SUPPLEMENT\HERBALS
  5. UBQUINOL COQ10 [Concomitant]
  6. ZINC. [Concomitant]
     Active Substance: ZINC
  7. CURAMIN [Concomitant]
     Active Substance: HERBALS
  8. SOTALOL. [Suspect]
     Active Substance: SOTALOL
     Indication: ATRIAL FIBRILLATION
     Dosage: ?          QUANTITY:1 TABLET(S);?
     Route: 048
  9. CALCIUM/MAGNESIUM [Concomitant]
     Active Substance: CALCIUM\MAGNESIUM
  10. LUTEIN [Concomitant]
     Active Substance: LUTEIN

REACTIONS (6)
  - Insomnia [None]
  - Asthenia [None]
  - Blood pressure decreased [None]
  - Urticaria [None]
  - Cough [None]
  - Fatigue [None]
